FAERS Safety Report 17811941 (Version 3)
Quarter: 2020Q2

REPORT INFORMATION
  Report Type: Report from Study
  Country: US (occurrence: US)
  Receive Date: 20200521
  Receipt Date: 20200625
  Transmission Date: 20200714
  Serious: Yes (Hospitalization, Other)
  Sender: FDA-Public Use
  Company Number: US-SA-2020SA126093

PATIENT

DRUGS (18)
  1. ACETAMINOPHEN. [Concomitant]
     Active Substance: ACETAMINOPHEN
     Indication: PYREXIA
  2. CEFTRIAXONE. [Concomitant]
     Active Substance: CEFTRIAXONE
     Indication: ANTIBIOTIC THERAPY
     Dosage: 1 G
     Route: 042
     Dates: start: 20200429, end: 20200505
  3. DOXYCYCLINE. [Concomitant]
     Active Substance: DOXYCYCLINE
     Indication: ANTIBIOTIC THERAPY
     Dosage: 100 MG, Q12H
     Route: 042
     Dates: start: 20200429, end: 20200429
  4. DOXYCYCLINE. [Concomitant]
     Active Substance: DOXYCYCLINE
     Dosage: 100 MG, BID
     Route: 048
     Dates: start: 20200429, end: 20200505
  5. REMDESIVIR. [Concomitant]
     Active Substance: REMDESIVIR
     Indication: ANTIVIRAL TREATMENT
     Dosage: 200 MG OTO
     Route: 042
     Dates: start: 20200504, end: 20200504
  6. ASPIRIN [ACETYLSALICYLIC ACID] [Concomitant]
     Active Substance: ASPIRIN
     Indication: ANTIPLATELET THERAPY
     Dosage: 324 MG OTO
     Route: 048
     Dates: start: 20200429, end: 20200429
  7. REMDESIVIR. [Concomitant]
     Active Substance: REMDESIVIR
     Dosage: 100 MG
     Route: 042
     Dates: start: 20200505, end: 20200513
  8. REMDESIVIR. [Concomitant]
     Active Substance: REMDESIVIR
     Dosage: 500 MG
  9. ENOXAPARIN [Concomitant]
     Active Substance: ENOXAPARIN
     Dosage: 60 MG, Q12H
     Route: 058
     Dates: start: 20200503
  10. SARILUMAB [Suspect]
     Active Substance: SARILUMAB
     Indication: COVID-19
     Dosage: 400 MG, 1X
     Route: 042
     Dates: start: 20200501, end: 20200501
  11. NYSTATIN;ZINC OXIDE [Concomitant]
     Indication: ANTIFUNGAL TREATMENT
     Dosage: UNK, BID
     Route: 061
     Dates: start: 20200513
  12. ENOXAPARIN [Concomitant]
     Active Substance: ENOXAPARIN
     Dosage: 40 MG, QD
     Route: 058
     Dates: start: 20200501, end: 20200503
  13. ACETAMINOPHEN. [Concomitant]
     Active Substance: ACETAMINOPHEN
     Indication: ANALGESIC THERAPY
     Dosage: 650 MG, PRN
     Route: 048
     Dates: start: 20200429, end: 20200505
  14. HYDROXYCHLOROQUINE [Concomitant]
     Active Substance: HYDROXYCHLOROQUINE
     Indication: COVID-19
     Dosage: 400 MG, BID
     Route: 048
     Dates: start: 20200429, end: 20200429
  15. PIPERACILLIN AND TAZOBACTAM [Concomitant]
     Active Substance: PIPERACILLIN SODIUM\TAZOBACTAM SODIUM
     Indication: ANTIBIOTIC THERAPY
     Dosage: 4.5 MG, Q8H
     Route: 042
     Dates: start: 20200510
  16. VANCOMYCIN [Concomitant]
     Active Substance: VANCOMYCIN
     Indication: ANTIBIOTIC THERAPY
     Dosage: 1250 MG, Q12H
     Route: 042
     Dates: start: 20200510, end: 20200512
  17. HYDROXYCHLOROQUINE [Concomitant]
     Active Substance: HYDROXYCHLOROQUINE
     Dosage: 200 MG, BID
     Route: 048
     Dates: start: 20200430, end: 20200503
  18. ENOXAPARIN [Concomitant]
     Active Substance: ENOXAPARIN
     Indication: ANTICOAGULANT THERAPY
     Dosage: 90 MG, Q12H
     Route: 058
     Dates: start: 20200429, end: 20200430

REACTIONS (4)
  - Fungaemia [Unknown]
  - Acute respiratory failure [Unknown]
  - Cerebrovascular accident [Recovered/Resolved with Sequelae]
  - Klebsiella sepsis [Unknown]

NARRATIVE: CASE EVENT DATE: 20200501
